FAERS Safety Report 24285996 (Version 1)
Quarter: 2024Q3

REPORT INFORMATION
  Report Type: Spontaneous
  Country: US (occurrence: None)
  Receive Date: 20240904
  Receipt Date: 20240904
  Transmission Date: 20241017
  Serious: No
  Sender: Public
  Company Number: None

PATIENT
  Age: 69 Year
  Sex: Female
  Weight: 77.4 kg

DRUGS (10)
  1. REPATHA [Suspect]
     Active Substance: EVOLOCUMAB
     Indication: Blood cholesterol increased
     Dosage: OTHER QUANTITY : 1 INJECTION(S);?FREQUENCY : EVERY OTHER WEEK;?
     Route: 058
     Dates: start: 20240817
  2. REPATHA [Concomitant]
     Active Substance: EVOLOCUMAB
  3. ACYCLOVIR [Concomitant]
     Active Substance: ACYCLOVIR
  4. ADVIL [Concomitant]
     Active Substance: IBUPROFEN\IBUPROFEN SODIUM
  5. CLARITIN [Concomitant]
     Active Substance: LORATADINE
  6. COENZYME Q10 [Concomitant]
     Active Substance: DIETARY SUPPLEMENT\UBIDECARENONE
  7. EPA [Concomitant]
  8. VITAMIN D NOS [Concomitant]
     Active Substance: CHOLECALCIFEROL\ERGOCALCIFEROL
  9. PHYTONADIONE [Concomitant]
     Active Substance: PHYTONADIONE
  10. Vit K2 [Concomitant]

REACTIONS (4)
  - Fatigue [None]
  - Myalgia [None]
  - Back pain [None]
  - Insomnia [None]

NARRATIVE: CASE EVENT DATE: 20240831
